FAERS Safety Report 19591867 (Version 3)
Quarter: 2021Q3

REPORT INFORMATION
  Report Type: Spontaneous
  Country: GB (occurrence: GB)
  Receive Date: 20210721
  Receipt Date: 20210805
  Transmission Date: 20211014
  Serious: Yes (Life-Threatening, Hospitalization, Other)
  Sender: FDA-Public Use
  Company Number: NVSC2021GB160367

PATIENT
  Age: 16 Year
  Sex: Female
  Weight: 41.8 kg

DRUGS (3)
  1. FLUDARABINE [Concomitant]
     Active Substance: FLUDARABINE PHOSPHATE
     Indication: LYMPHODEPLETION
     Dosage: UNK
     Route: 065
  2. CYCLOPHOSPHAMIDE. [Concomitant]
     Active Substance: CYCLOPHOSPHAMIDE
     Indication: LYMPHODEPLETION
     Dosage: UNK
     Route: 065
  3. KYMRIAH [Suspect]
     Active Substance: TISAGENLECLEUCEL
     Indication: ACUTE LYMPHOCYTIC LEUKAEMIA
     Dosage: UNK, ONCE/SINGLE, TOTAL (CD19 CAR T CELLS 4.9 X 106/KG)
     Route: 041
     Dates: start: 20210624

REACTIONS (8)
  - Haemophagocytic lymphohistiocytosis [Unknown]
  - Cytokine release syndrome [Unknown]
  - Pyrexia [Unknown]
  - Face oedema [Recovered/Resolved]
  - B-cell aplasia [Unknown]
  - Inflammation [Recovering/Resolving]
  - Tumour pseudoprogression [Not Recovered/Not Resolved]
  - Respiratory tract oedema [Unknown]

NARRATIVE: CASE EVENT DATE: 20210627
